FAERS Safety Report 4588710-7 (Version None)
Quarter: 2005Q1

REPORT INFORMATION
  Report Type: 
  Country: None (occurrence: None)
  Receive Date: 20050216
  Receipt Date: 20050127
  Transmission Date: 20050727
  Serious: Yes (Hospitalization, Other)
  Sender: FDA-Public Use
  Company Number: USA040670201

PATIENT
  Age: 76 Year
  Sex: Female
  Weight: 49 kg

DRUGS (11)
  1. FORTEO [Suspect]
     Indication: OSTEOPOROSIS
     Dosage: 20 UG/1 DAY
     Dates: start: 20020101
  2. EVISTA [Suspect]
     Indication: OSTEOPOROSIS
     Dates: start: 20020401, end: 20020501
  3. ACTOS [Concomitant]
  4. AGGRENOX [Concomitant]
  5. PLAQUENIL [Concomitant]
  6. PREDNISONE [Concomitant]
  7. INDERAL [Concomitant]
  8. MULTI-VITAMIN [Concomitant]
  9. VITAMIN B-12 [Concomitant]
  10. CALCIUM WITH VITAMIN D [Concomitant]
  11. SYNTHROID [Concomitant]

REACTIONS (28)
  - AMMONIA INCREASED [None]
  - AXILLARY MASS [None]
  - BLOOD GLUCOSE INCREASED [None]
  - BLOOD MAGNESIUM DECREASED [None]
  - BLOOD PHOSPHORUS DECREASED [None]
  - BLOOD UREA INCREASED [None]
  - CEREBROVASCULAR ACCIDENT [None]
  - CONDITION AGGRAVATED [None]
  - CONVULSION [None]
  - DIZZINESS [None]
  - ENCEPHALITIS [None]
  - ENCEPHALOPATHY [None]
  - EPILEPSY [None]
  - HEPATIC ENCEPHALOPATHY [None]
  - HYPERREFLEXIA [None]
  - HYPOTHYROIDISM [None]
  - INSOMNIA [None]
  - LIVER DISORDER [None]
  - MUSCLE RIGIDITY [None]
  - MYOCLONUS [None]
  - OVERDOSE [None]
  - PERITONITIS BACTERIAL [None]
  - PHARMACEUTICAL PRODUCT COMPLAINT [None]
  - PLATELET COUNT DECREASED [None]
  - RASH GENERALISED [None]
  - RHEUMATOID ARTHRITIS [None]
  - SEPSIS [None]
  - THROMBOSIS [None]
